FAERS Safety Report 6426982-4 (Version None)
Quarter: 2009Q4

REPORT INFORMATION
  Report Type: 
  Country: None (occurrence: None)
  Receive Date: 20091104
  Receipt Date: 20091029
  Transmission Date: 20100525
  Serious: Yes (Life-Threatening, Hospitalization)
  Sender: FDA-Public Use
  Company Number: JP-BAYER-200911836BYL

PATIENT
  Age: 58 Year
  Sex: Male
  Weight: 36 kg

DRUGS (4)
  1. NEXAVAR [Suspect]
     Indication: RENAL CELL CARCINOMA STAGE IV
     Dosage: UNIT DOSE: 200 MG
     Route: 048
     Dates: start: 20090514, end: 20090527
  2. NEXAVAR [Suspect]
     Dosage: UNIT DOSE: 200 MG
     Route: 048
     Dates: start: 20090713
  3. PREDONINE [Suspect]
     Route: 048
     Dates: start: 20090514, end: 20090527
  4. UNASYN [Concomitant]
     Indication: PNEUMONIA
     Dosage: TOTAL DAILY DOSE: 3 G
     Route: 042
     Dates: start: 20090427, end: 20090501

REACTIONS (2)
  - LUNG INFECTION [None]
  - SEPSIS [None]
